FAERS Safety Report 6131851-3 (Version None)
Quarter: 2009Q1

REPORT INFORMATION
  Report Type: 
  Country: None (occurrence: None)
  Receive Date: 20090325
  Receipt Date: 20090317
  Transmission Date: 20090719
  Serious: Yes (Hospitalization, Other)
  Sender: FDA-Public Use
  Company Number: PHHY2009DE09684

PATIENT
  Age: 47 Year
  Sex: Male

DRUGS (5)
  1. CIBACEN [Suspect]
     Indication: HYPERTENSION
     Dosage: 20 MG, QD
     Route: 048
  2. NOVAMIN [Interacting]
     Indication: UPPER RESPIRATORY TRACT INFECTION
     Dosage: 30 GTT, 1 IN 1 TOTAL
     Route: 048
     Dates: start: 20090212, end: 20090212
  3. NOVAMIN [Interacting]
     Indication: PYREXIA
  4. BISOPROLOL FUMARATE [Interacting]
     Indication: HYPERTENSION
     Dosage: 5 MG, BID
     Route: 048
  5. SIMVASTATIN [Concomitant]
     Indication: HYPERLIPIDAEMIA
     Route: 048

REACTIONS (11)
  - ANXIETY [None]
  - BLOOD POTASSIUM DECREASED [None]
  - C-REACTIVE PROTEIN INCREASED [None]
  - DIZZINESS [None]
  - DRUG INTERACTION [None]
  - DYSPNOEA [None]
  - HYPERHIDROSIS [None]
  - HYPOTENSION [None]
  - PLATELET COUNT DECREASED [None]
  - PYREXIA [None]
  - UPPER RESPIRATORY TRACT INFECTION [None]
